FAERS Safety Report 17237371 (Version 1)
Quarter: 2020Q1

REPORT INFORMATION
  Report Type: Spontaneous
  Country: US (occurrence: US)
  Receive Date: 20200106
  Receipt Date: 20200106
  Transmission Date: 20200409
  Serious: No
  Sender: FDA-Public Use
  Company Number: US-PFIZER INC-2020002151

PATIENT
  Age: 70 Year
  Sex: Female
  Weight: 67.12 kg

DRUGS (7)
  1. NINLARO [Concomitant]
     Active Substance: IXAZOMIB CITRATE
     Dosage: UNK
  2. ADVIL [Suspect]
     Active Substance: IBUPROFEN
     Indication: PYREXIA
     Dosage: UNK
  3. ZOMETA [Concomitant]
     Active Substance: ZOLEDRONIC ACID
     Dosage: UNK
  4. REVLIMID [Suspect]
     Active Substance: LENALIDOMIDE
     Dosage: 15 MG, 1X/DAY(15 MILLIGRAM, 1 IN 1 D)
     Route: 048
     Dates: start: 20161122
  5. REVLIMID [Suspect]
     Active Substance: LENALIDOMIDE
     Dosage: 15 MG, 1X/DAY ((15 MILLIGRAM, 1 IN 1 D)
     Route: 048
     Dates: start: 201808
  6. REVLIMID [Suspect]
     Active Substance: LENALIDOMIDE
     Indication: PLASMA CELL MYELOMA
     Dosage: 25 MG, 1X/DAY (25 MILLIGRAM, 1 IN 1 D)
     Route: 048
     Dates: start: 201612
  7. VELCADE [Concomitant]
     Active Substance: BORTEZOMIB
     Dosage: UNK

REACTIONS (5)
  - Influenza [Recovering/Resolving]
  - Dizziness [Recovering/Resolving]
  - Loss of personal independence in daily activities [Recovering/Resolving]
  - Fall [Recovering/Resolving]
  - Nasopharyngitis [Recovering/Resolving]

NARRATIVE: CASE EVENT DATE: 2019
